FAERS Safety Report 9163472 (Version 1)
Quarter: 2012Q4

REPORT INFORMATION
  Report Type: 
  Country: US (occurrence: US)
  Receive Date: 20121210
  Receipt Date: 20121210
  Transmission Date: 20130627
  Serious: Yes (Other)
  Sender: FDA-Public Use
  Company Number: US-RB-047400-12

PATIENT
  Age: 8 Year
  Sex: Female

DRUGS (4)
  1. MUCINEX FAST MAX ADULT COLD, FLU + SORE THROAT (ACETAMINOPHEN) [Suspect]
     Indication: NASOPHARYNGITIS
     Dosage: Child was given 1 10ml dose accidentally
     Route: 048
     Dates: start: 20121202
  2. MUCINEX [Suspect]
  3. MUCINEX FAST MAX ADULT COLD, FLU + SORE THROAT (GUAIFENESIN) [Suspect]
  4. MUCINEX FAST MAX ADULT COLD, FLU + SORE THROAT (PHENYLEPHRINE) [Suspect]

REACTIONS (3)
  - Epistaxis [Recovered/Resolved]
  - Accidental exposure to product by child [Recovered/Resolved]
  - Off label use [None]
